FAERS Safety Report 6812603-5 (Version None)
Quarter: 2010Q3

REPORT INFORMATION
  Report Type: 
  Country: None (occurrence: None)
  Receive Date: 20100701
  Receipt Date: 20100622
  Transmission Date: 20110219
  Serious: Yes (Other)
  Sender: FDA-Public Use
  Company Number: US-PFIZER INC-2010078056

PATIENT
  Sex: Female
  Weight: 90 kg

DRUGS (7)
  1. CHANTIX [Suspect]
     Indication: SMOKING CESSATION THERAPY
     Dosage: 0.5 MG, UNK
     Route: 048
     Dates: start: 20100609, end: 20100601
  2. CHANTIX [Suspect]
     Dosage: 1 MG, 2X/DAY
     Route: 048
     Dates: start: 20100601, end: 20100617
  3. METHADONE [Concomitant]
     Indication: BACK INJURY
     Dosage: 10 MG, 1X/DAY
     Route: 048
  4. OXYCODONE [Concomitant]
     Indication: BACK PAIN
     Dosage: 5 MG, 1X/DAY
     Route: 048
  5. CITALOPRAM HYDROBROMIDE [Concomitant]
     Indication: PAIN
     Dosage: 40 MG, 1X/DAY
     Route: 048
  6. CITALOPRAM HYDROBROMIDE [Concomitant]
     Indication: DEPRESSION
  7. FLEXERIL [Concomitant]
     Indication: BACK PAIN
     Dosage: 10 MG, 1X/DAY
     Route: 048

REACTIONS (3)
  - ABDOMINAL PAIN UPPER [None]
  - DYSPEPSIA [None]
  - GASTROINTESTINAL DISORDER [None]
